FAERS Safety Report 24014689 (Version 1)
Quarter: 2024Q2

REPORT INFORMATION
  Report Type: Spontaneous
  Country: US (occurrence: US)
  Receive Date: 20240626
  Receipt Date: 20240626
  Transmission Date: 20240715
  Serious: No
  Sender: FDA-Public Use
  Company Number: US-JNJFOC-20240658971

PATIENT
  Age: 72 Year
  Sex: Male

DRUGS (2)
  1. ERLEADA [Suspect]
     Active Substance: APALUTAMIDE
     Indication: Prostate cancer metastatic
     Dosage: 0MG TABLETS, 4 TABLETS PER DAY,?TO EQUAL 240MG DAILY
     Route: 048
     Dates: start: 202101
  2. ELIGARD [Suspect]
     Active Substance: LEUPROLIDE ACETATE
     Indication: Prostate cancer metastatic
     Route: 065

REACTIONS (8)
  - Osteopenia [Unknown]
  - Osteoporosis [Unknown]
  - Body surface area decreased [Unknown]
  - Muscle atrophy [Unknown]
  - Bone density decreased [Unknown]
  - Blood testosterone decreased [Unknown]
  - Intentional product use issue [Unknown]
  - Asthenia [Unknown]
